FAERS Safety Report 6469487-7 (Version None)
Quarter: 2009Q4

REPORT INFORMATION
  Report Type: 
  Country: None (occurrence: None)
  Receive Date: 20091203
  Receipt Date: 20091125
  Transmission Date: 20100525
  Serious: Yes (Other)
  Sender: FDA-Public Use
  Company Number: AU-BRISTOL-MYERS SQUIBB COMPANY-14878110

PATIENT

DRUGS (1)
  1. KARVEZIDE TABS [Suspect]
     Dosage: 1 DF = 300/25MG
     Route: 048
     Dates: start: 20050101

REACTIONS (1)
  - DIABETES MELLITUS [None]
